FAERS Safety Report 6972020-4 (Version None)
Quarter: 2010Q3

REPORT INFORMATION
  Report Type: 
  Country: None (occurrence: None)
  Receive Date: 20100909
  Receipt Date: 20100412
  Transmission Date: 20110219
  Serious: No
  Sender: FDA-Public Use
  Company Number: US-ASTRAZENECA-2010SE01927

PATIENT
  Sex: Female

DRUGS (3)
  1. SEROQUEL [Suspect]
     Route: 048
     Dates: start: 20090101
  2. PHENERGAN [Concomitant]
     Indication: NAUSEA
     Route: 048
     Dates: start: 20090325
  3. PHENERGAN [Concomitant]
     Indication: VOMITING
     Route: 048
     Dates: start: 20090325

REACTIONS (2)
  - THROMBOCYTOPENIA [None]
  - TYPE 2 DIABETES MELLITUS [None]
